FAERS Safety Report 12354935 (Version 1)
Quarter: 2016Q2

REPORT INFORMATION
  Report Type: Spontaneous
  Country: US (occurrence: None)
  Receive Date: 20160510
  Receipt Date: 20160510
  Transmission Date: 20160815
  Serious: No
  Sender: FDA-Public Use
  Company Number: None

PATIENT
  Sex: Female

DRUGS (2)
  1. BYETTA [Suspect]
     Active Substance: EXENATIDE
  2. PREDNISONE. [Suspect]
     Active Substance: PREDNISONE

REACTIONS (12)
  - Nephrolithiasis [None]
  - Weight increased [None]
  - Binge eating [None]
  - Thrombosis [None]
  - Escherichia infection [None]
  - Stress [None]
  - Pancreatitis [None]
  - Myocardial infarction [None]
  - Blood glucose increased [None]
  - Joint injury [None]
  - Fall [None]
  - Renal injury [None]
